FAERS Safety Report 23403943 (Version 1)
Quarter: 2024Q1

REPORT INFORMATION
  Report Type: Spontaneous
  Country: MX (occurrence: None)
  Receive Date: 20240116
  Receipt Date: 20240116
  Transmission Date: 20240409
  Serious: Yes (Other)
  Sender: FDA-Public Use
  Company Number: MX-ROCHE-3491132

PATIENT
  Age: 68 Year
  Sex: Male
  Weight: 83 kg

DRUGS (10)
  1. RITUXIMAB [Suspect]
     Active Substance: RITUXIMAB
     Indication: Follicular lymphoma
     Route: 065
     Dates: end: 202302
  2. OBINUTUZUMAB [Suspect]
     Active Substance: OBINUTUZUMAB
     Indication: Follicular lymphoma
     Route: 065
     Dates: start: 202308, end: 20231210
  3. MESNA [Concomitant]
     Active Substance: MESNA
     Indication: Follicular lymphoma
  4. IFOSFAMIDE [Concomitant]
     Active Substance: IFOSFAMIDE
     Indication: Follicular lymphoma
     Dosage: 6 CYCLES
  5. MITOXANTRONE [Concomitant]
     Active Substance: MITOXANTRONE HYDROCHLORIDE
     Indication: Follicular lymphoma
     Dosage: 6 CYCLES
  6. ETOPOSIDE [Concomitant]
     Active Substance: ETOPOSIDE
     Indication: Follicular lymphoma
  7. CYCLOPHOSPHAMIDE [Concomitant]
     Active Substance: CYCLOPHOSPHAMIDE
     Indication: Follicular lymphoma
     Dates: start: 202308
  8. VINCRISTINE [Concomitant]
     Active Substance: VINCRISTINE
     Indication: Follicular lymphoma
     Dates: start: 202308
  9. PREDNISONE [Concomitant]
     Active Substance: PREDNISONE
     Indication: Follicular lymphoma
     Dates: start: 202308
  10. EPIRUBICIN [Concomitant]
     Active Substance: EPIRUBICIN
     Indication: Follicular lymphoma
     Dates: start: 202308

REACTIONS (4)
  - Follicular lymphoma recurrent [Unknown]
  - Fatigue [Unknown]
  - Haemoglobin decreased [Unknown]
  - Blood glucose increased [Unknown]

NARRATIVE: CASE EVENT DATE: 20230801
